FAERS Safety Report 8898634 (Version 1)
Quarter: 2012Q4

REPORT INFORMATION
  Report Type: 
  Country: US (occurrence: US)
  Receive Date: 20121108
  Receipt Date: 20121108
  Transmission Date: 20130627
  Serious: Yes (Other)
  Sender: FDA-Public Use
  Company Number: US-009507513-1211USA002788

PATIENT

DRUGS (2)
  1. SINGULAIR [Suspect]
     Dosage: UNK
     Dates: start: 201208
  2. ALBUTEROL [Concomitant]
     Dosage: UNK
     Dates: start: 201208

REACTIONS (10)
  - Sleep paralysis [Unknown]
  - Fear [Unknown]
  - Sleep disorder [Unknown]
  - Abnormal sleep-related event [Unknown]
  - Movement disorder [Unknown]
  - Feeling abnormal [Unknown]
  - Paraesthesia [Unknown]
  - Crying [Unknown]
  - Dizziness [Unknown]
  - Feeling abnormal [Unknown]
